FAERS Safety Report 8610511-0 (Version None)
Quarter: 2012Q3

REPORT INFORMATION
  Report Type: 
  Country: None (occurrence: None)
  Receive Date: 20120423
  Receipt Date: 20100706
  Transmission Date: 20120928
  Serious: Yes (Other)
  Sender: FDA-Public Use
  Company Number: PHHY2010US21640

PATIENT
  Age: 80 Year
  Sex: Female

DRUGS (3)
  1. ASCORBIC ACID [Concomitant]
  2. FEMARA [Suspect]
     Indication: BREAST CANCER FEMALE
     Dosage: 2.5 MG
     Dates: start: 20080417, end: 20080429
  3. CALCIUM CARBONATE [Concomitant]

REACTIONS (3)
  - OEDEMA PERIPHERAL [None]
  - DRUG INTOLERANCE [None]
  - JOINT SWELLING [None]
